FAERS Safety Report 18547090 (Version 1)
Quarter: 2020Q4

REPORT INFORMATION
  Report Type: Other
  Country: GB (occurrence: GB)
  Receive Date: 20201125
  Receipt Date: 20201125
  Transmission Date: 20210114
  Serious: No
  Sender: FDA-Public Use
  Company Number: GB-LUPIN PHARMACEUTICALS INC.-2020-07756

PATIENT
  Age: 31 Year
  Sex: Female
  Weight: 62 kg

DRUGS (11)
  1. NICOTINE. [Concomitant]
     Active Substance: NICOTINE
     Indication: PRODUCT USED FOR UNKNOWN INDICATION
     Dosage: 1 DOSAGE FORM, QD
     Route: 065
     Dates: start: 20200803
  2. PROCHLORPERAZINE. [Concomitant]
     Active Substance: PROCHLORPERAZINE
     Indication: PRODUCT USED FOR UNKNOWN INDICATION
     Dosage: 1 DOSAGE FORM, TID
     Route: 065
     Dates: start: 20200702
  3. VENTOLIN [Concomitant]
     Active Substance: ALBUTEROL SULFATE
     Indication: PRODUCT USED FOR UNKNOWN INDICATION
     Dosage: UNK, QID (1 TO 2 PUFFS UP TO FOUR TIMES DAILY AS REQUIRED)
     Route: 065
     Dates: start: 20200713
  4. IBUPROFEN. [Concomitant]
     Active Substance: IBUPROFEN
     Indication: PRODUCT USED FOR UNKNOWN INDICATION
     Dosage: 1 DOSAGE FORM, TID
     Route: 065
     Dates: start: 20200803
  5. SERTRALINE [Suspect]
     Active Substance: SERTRALINE HYDROCHLORIDE
     Indication: PRODUCT USED FOR UNKNOWN INDICATION
     Dosage: UNK
     Route: 048
  6. VARENICLINE [Concomitant]
     Active Substance: VARENICLINE
     Dosage: 500 MCG, QD
     Route: 065
  7. CHLORAMPHENICOL [Concomitant]
     Active Substance: CHLORAMPHENICOL
     Indication: PRODUCT USED FOR UNKNOWN INDICATION
     Dosage: UNK, QID (APPLY FOUR TIMES DAILY FOR 5 DAYS)
     Route: 065
     Dates: start: 20200702
  8. DIAZEPAM. [Concomitant]
     Active Substance: DIAZEPAM
     Indication: PRODUCT USED FOR UNKNOWN INDICATION
     Dosage: UNK UNK, PRN (1 WHEN REQUIRED, USE VERY SPARINGLY, SHORT TERM ONLY DUE TO ADDICTION)
     Route: 065
     Dates: start: 20200731
  9. VARENICLINE [Concomitant]
     Active Substance: VARENICLINE
     Dosage: 1 DOSAGE FORM, BID
     Route: 065
  10. COCODAMOL [Concomitant]
     Active Substance: ACETAMINOPHEN\CODEINE PHOSPHATE
     Indication: PRODUCT USED FOR UNKNOWN INDICATION
     Dosage: UNK, QID (1-2 TABLETS UP TO FOUR TIMES DAILY)
     Route: 065
     Dates: start: 20200810
  11. VARENICLINE [Concomitant]
     Active Substance: VARENICLINE
     Indication: PRODUCT USED FOR UNKNOWN INDICATION
     Dosage: UNK (STARTER PACK FOR 2 WEEKS THEN REVIEW WITH YOUR DR, TAKE 500MCG OD FOR FIRST 3 DAYS. 1 TABLET BD
     Route: 065
     Dates: start: 20200713

REACTIONS (2)
  - Diarrhoea [Recovering/Resolving]
  - Nausea [Unknown]

NARRATIVE: CASE EVENT DATE: 20200810
